FAERS Safety Report 8169077-4 (Version None)
Quarter: 2012Q1

REPORT INFORMATION
  Report Type: 
  Country: None (occurrence: None)
  Receive Date: 20120227
  Receipt Date: 20120222
  Transmission Date: 20120608
  Serious: Yes (Life-Threatening)
  Sender: FDA-Public Use
  Company Number: RU-ASTRAZENECA-2010SE36200

PATIENT
  Age: 23 Year
  Sex: Female
  Weight: 96 kg

DRUGS (1)
  1. MARCAINE [Suspect]
     Indication: SPINAL ANAESTHESIA
     Route: 037
     Dates: start: 20100730

REACTIONS (5)
  - DYSPNOEA [None]
  - ADVERSE EVENT [None]
  - BLOOD PRESSURE DECREASED [None]
  - RENAL DISORDER [None]
  - MATERNAL EXPOSURE DURING PREGNANCY [None]
